FAERS Safety Report 17547630 (Version 1)
Quarter: 2020Q1

REPORT INFORMATION
  Report Type: Report from Study
  Country: None (occurrence: BR)
  Receive Date: 20200317
  Receipt Date: 20200317
  Transmission Date: 20200409
  Serious: Yes (Hospitalization, Other)
  Sender: FDA-Public Use
  Company Number: BR-ABBVIE-20K-020-3320983-00

PATIENT
  Sex: Female
  Weight: 86 kg

DRUGS (3)
  1. REUQUINOL [Concomitant]
     Active Substance: HYDROXYCHLOROQUINE SULFATE
     Indication: RHEUMATOID ARTHRITIS
     Route: 065
  2. HUMIRA [Suspect]
     Active Substance: ADALIMUMAB
     Indication: RHEUMATOID ARTHRITIS
     Route: 058
     Dates: start: 20141001, end: 20200217
  3. DEMEDROX [Suspect]
     Active Substance: MEDROXYPROGESTERONE ACETATE
     Indication: ENDOMETRIOSIS
     Route: 065

REACTIONS (7)
  - Cyst [Unknown]
  - Endometriosis [Unknown]
  - Hysterectomy [Unknown]
  - Therapeutic product effect incomplete [Unknown]
  - Flatulence [Unknown]
  - Leiomyoma [Unknown]
  - Uterine enlargement [Unknown]

NARRATIVE: CASE EVENT DATE: 2017
